FAERS Safety Report 4557867-6 (Version None)
Quarter: 2005Q1

REPORT INFORMATION
  Report Type: 
  Country: None (occurrence: None)
  Receive Date: 20050103
  Receipt Date: 20040921
  Transmission Date: 20050727
  Serious: Yes (Other)
  Sender: FDA-Public Use
  Company Number: 2004UW19694

PATIENT
  Sex: Female
  Weight: 90.7194 kg

DRUGS (2)
  1. CRESTOR [Suspect]
     Indication: BLOOD CHOLESTEROL INCREASED
     Dosage: 10 MG PO
     Route: 048
  2. CALAN [Concomitant]

REACTIONS (1)
  - ALOPECIA [None]
